FAERS Safety Report 12736593 (Version 1)
Quarter: 2016Q3

REPORT INFORMATION
  Report Type: Report from Study
  Country: BR (occurrence: BR)
  Receive Date: 20160913
  Receipt Date: 20160913
  Transmission Date: 20161109
  Serious: Yes (Other)
  Sender: FDA-Public Use
  Company Number: PHHY2015BR097115

PATIENT
  Sex: Female
  Weight: 55 kg

DRUGS (1)
  1. EXJADE [Suspect]
     Active Substance: DEFERASIROX
     Indication: SICKLE CELL ANAEMIA
     Dosage: 4 DF OF 500 MG, UNK
     Route: 065

REACTIONS (9)
  - Pneumonia [Unknown]
  - Anxiety [Not Recovered/Not Resolved]
  - Ocular icterus [Unknown]
  - Malaise [Unknown]
  - Pain [Unknown]
  - Splenomegaly [Unknown]
  - Pyrexia [Recovered/Resolved]
  - Headache [Not Recovered/Not Resolved]
  - Gait disturbance [Unknown]
